FAERS Safety Report 6469280-5 (Version None)
Quarter: 2009Q4

REPORT INFORMATION
  Report Type: 
  Country: None (occurrence: None)
  Receive Date: 20091203
  Receipt Date: 20090604
  Transmission Date: 20100525
  Serious: Yes (Other)
  Sender: FDA-Public Use
  Company Number: US-ELI_LILLY_AND_COMPANY-US200706004072

PATIENT
  Sex: Female
  Weight: 89.342 kg

DRUGS (17)
  1. BYETTA [Suspect]
     Indication: TYPE 2 DIABETES MELLITUS
     Dosage: 10 UG, 2/D
     Route: 058
     Dates: start: 20061101, end: 20061201
  2. BYETTA [Suspect]
     Dosage: 5 UG, 2/D
     Route: 058
     Dates: start: 20061201, end: 20070101
  3. BYETTA [Suspect]
     Dosage: 10 UG, 2/D
     Route: 058
     Dates: start: 20070101
  4. BYETTA [Suspect]
     Dosage: 10 UG, 2/D
     Route: 058
  5. BYETTA [Suspect]
     Dosage: 5 UG, 2/D
     Route: 058
     Dates: end: 20080101
  6. HYDRALAZINE HCL [Concomitant]
     Indication: HYPERTENSION
     Dosage: UNK, UNKNOWN
     Dates: end: 20060101
  7. HYDRALAZINE HCL [Concomitant]
     Dosage: 200 MG, 2/D
     Route: 048
     Dates: start: 20060101
  8. LANTUS [Concomitant]
     Indication: DIABETES MELLITUS
     Dosage: 30 U, 2/D
     Route: 058
     Dates: end: 20070101
  9. LANTUS [Concomitant]
     Dosage: 25 U, 2/D
     Route: 058
     Dates: start: 20070101
  10. LANTUS [Concomitant]
     Dosage: 35 U, EACH MORNING
  11. LANTUS [Concomitant]
     Dosage: 10 U, EACH EVENING
  12. LEXAPRO [Concomitant]
  13. NASONEX [Concomitant]
     Route: 045
  14. MULTI-VITAMIN [Concomitant]
  15. SIMVASTATIN [Concomitant]
  16. ASPIRIN [Concomitant]
  17. HUMULIN                                 /PRI/ [Concomitant]
     Indication: TYPE 2 DIABETES MELLITUS
     Dosage: UNK, OTHER
     Dates: start: 20080101

REACTIONS (14)
  - BLOOD GLUCOSE DECREASED [None]
  - BLOOD GLUCOSE INCREASED [None]
  - BLOOD PRESSURE INCREASED [None]
  - CONFUSIONAL STATE [None]
  - DECREASED APPETITE [None]
  - DIZZINESS [None]
  - FALL [None]
  - HYPERHIDROSIS [None]
  - IRRITABILITY [None]
  - LOSS OF CONSCIOUSNESS [None]
  - MALAISE [None]
  - ORTHOSTATIC HYPOTENSION [None]
  - SOMNOLENCE [None]
  - WEIGHT DECREASED [None]
